FAERS Safety Report 11738883 (Version 1)
Quarter: 2015Q4

REPORT INFORMATION
  Report Type: Spontaneous
  Country: US (occurrence: US)
  Receive Date: 20151113
  Receipt Date: 20151113
  Transmission Date: 20160304
  Serious: No
  Sender: FDA-Public Use
  Company Number: US-ROCHE-1270740

PATIENT
  Sex: Female

DRUGS (1)
  1. KADCYLA [Suspect]
     Active Substance: ADO-TRASTUZUMAB EMTANSINE
     Indication: PRODUCT USED FOR UNKNOWN INDICATION
     Route: 065
     Dates: end: 20130103

REACTIONS (7)
  - Dry mouth [Unknown]
  - Ocular hyperaemia [Unknown]
  - Muscle spasms [Unknown]
  - Pain [Unknown]
  - Headache [Unknown]
  - Decreased appetite [Unknown]
  - Chills [Unknown]

NARRATIVE: CASE EVENT DATE: 20130828
